FAERS Safety Report 24358551 (Version 1)
Quarter: 2024Q3

REPORT INFORMATION
  Report Type: Spontaneous
  Country: US (occurrence: None)
  Receive Date: 20240924
  Receipt Date: 20240924
  Transmission Date: 20241016
  Serious: Yes (Other)
  Sender: Public
  Company Number: None

PATIENT
  Age: 54 Year
  Sex: Female
  Weight: 87.3 kg

DRUGS (1)
  1. RECLAST [Suspect]
     Active Substance: ZOLEDRONIC ACID
     Indication: Osteoporosis
     Dates: start: 20240920, end: 20240920

REACTIONS (3)
  - Ocular hyperaemia [None]
  - Dry eye [None]
  - Eye swelling [None]

NARRATIVE: CASE EVENT DATE: 20240920
